FAERS Safety Report 24926166 (Version 3)
Quarter: 2025Q1

REPORT INFORMATION
  Report Type: Report from Study
  Country: US (occurrence: US)
  Receive Date: 20250205
  Receipt Date: 20250303
  Transmission Date: 20250409
  Serious: Yes (Hospitalization)
  Sender: ALEXION PHARMACEUTICALS
  Company Number: US-AstraZeneca-CH-00797912A

PATIENT

DRUGS (1)
  1. SOLIRIS [Suspect]
     Active Substance: ECULIZUMAB
     Indication: Atypical haemolytic uraemic syndrome
     Route: 065

REACTIONS (9)
  - Swelling face [Unknown]
  - Infection [Not Recovered/Not Resolved]
  - Heart rate increased [Recovering/Resolving]
  - International normalised ratio increased [Unknown]
  - Dysarthria [Unknown]
  - Swollen tongue [Unknown]
  - Cellulitis [Unknown]
  - Staphylococcal infection [Unknown]
  - Dyspnoea [Unknown]
